FAERS Safety Report 7482752-X (Version None)
Quarter: 2011Q2

REPORT INFORMATION
  Report Type: 
  Country: None (occurrence: None)
  Receive Date: 20110516
  Receipt Date: 20110513
  Transmission Date: 20111010
  Serious: Yes (Other)
  Sender: FDA-Public Use
  Company Number: US-PFIZER INC-2011079507

PATIENT
  Sex: Female
  Weight: 61.224 kg

DRUGS (10)
  1. CHANTIX [Suspect]
     Indication: SMOKING CESSATION THERAPY
     Dosage: 0.5 MG, 1X/DAY
     Route: 048
     Dates: start: 20110401, end: 20110401
  2. LISINOPRIL [Concomitant]
     Indication: BLOOD PRESSURE ABNORMAL
     Dosage: UNK
     Dates: start: 20100101
  3. ACTONEL [Concomitant]
     Indication: OSTEOPOROSIS
  4. VITAMIN D [Concomitant]
     Dosage: 2000 IU, DAILY
  5. CALCIUM [Concomitant]
     Dosage: UNK
  6. METFORMIN [Concomitant]
     Indication: DIABETES MELLITUS
     Dosage: UNK
  7. CHANTIX [Suspect]
     Dosage: 1 MG, 2X/DAY
     Route: 048
     Dates: start: 20110401, end: 20110410
  8. ACTONEL [Concomitant]
     Indication: OSTEOPENIA
     Dosage: UNK
     Route: 048
  9. LOVASTATIN [Concomitant]
     Indication: BLOOD CHOLESTEROL ABNORMAL
     Dosage: UNK
  10. MULTI-VITAMINS [Concomitant]
     Dosage: UNK, DAILY

REACTIONS (4)
  - RETCHING [None]
  - NAUSEA [None]
  - VOMITING [None]
  - DEHYDRATION [None]
